FAERS Safety Report 8205062-1 (Version None)
Quarter: 2012Q1

REPORT INFORMATION
  Report Type: 
  Country: None (occurrence: None)
  Receive Date: 20120309
  Receipt Date: 20120228
  Transmission Date: 20120608
  Serious: Yes (Other)
  Sender: FDA-Public Use
  Company Number: 1201-023

PATIENT
  Age: 81 Year
  Sex: Male

DRUGS (5)
  1. PRESERVISION (OCUVITE /01762701/) [Concomitant]
  2. ASPIRIN [Concomitant]
  3. EYLEA [Suspect]
     Indication: AGE-RELATED MACULAR DEGENERATION
     Dosage: 2 MG, 1 IN 1 M, INTRAVITREAL
     Dates: start: 20111206
  4. WARFARIN SODIUM [Concomitant]
  5. SYSTANE (OU) BOTH EYES (RHINARIS) [Concomitant]

REACTIONS (5)
  - ENDOPHTHALMITIS [None]
  - PHOTOPHOBIA [None]
  - EYE INFLAMMATION [None]
  - VITRITIS [None]
  - VITREOUS DISORDER [None]
